FAERS Safety Report 6901095-3 (Version None)
Quarter: 2010Q3

REPORT INFORMATION
  Report Type: 
  Country: None (occurrence: None)
  Receive Date: 20100708
  Receipt Date: 20090514
  Transmission Date: 20110219
  Serious: Yes (Other)
  Sender: FDA-Public Use
  Company Number: 2009216619

PATIENT
  Sex: Female

DRUGS (2)
  1. CHANTIX [Suspect]
  2. PROZAC [Concomitant]

REACTIONS (1)
  - SUICIDAL IDEATION [None]
